FAERS Safety Report 8541045-X (Version None)
Quarter: 2012Q3

REPORT INFORMATION
  Report Type: 
  Country: None (occurrence: None)
  Receive Date: 20120726
  Receipt Date: 20110822
  Transmission Date: 20120928
  Serious: No
  Sender: FDA-Public Use
  Company Number: US-ASTRAZENECA-2011SE50655

PATIENT

DRUGS (2)
  1. SEROQUEL XR [Suspect]
     Route: 048
  2. ZOLOFT [Concomitant]

REACTIONS (8)
  - MANIA [None]
  - ANXIETY [None]
  - INFLAMMATION [None]
  - RESTLESSNESS [None]
  - DISTURBANCE IN ATTENTION [None]
  - OSTEOARTHRITIS [None]
  - PAIN [None]
  - DEPRESSION [None]
